FAERS Safety Report 5209297-1 (Version None)
Quarter: 2007Q1

REPORT INFORMATION
  Report Type: 
  Country: None (occurrence: None)
  Receive Date: 20070116
  Receipt Date: 20070104
  Transmission Date: 20070707
  Serious: Yes (Hospitalization)
  Sender: FDA-Public Use
  Company Number: CH-SANOFI-SYNTHELABO-A01200700152

PATIENT
  Age: 67 Year
  Sex: Female
  Weight: 72 kg

DRUGS (11)
  1. RESONIUM [Concomitant]
     Indication: HYPERKALAEMIA
     Dosage: UNK
     Route: 065
     Dates: end: 20061112
  2. AVANDIA [Concomitant]
     Indication: DRUG USE FOR UNKNOWN INDICATION
     Dosage: 4 MG
     Route: 065
     Dates: end: 20061107
  3. METFIN [Concomitant]
     Indication: DRUG USE FOR UNKNOWN INDICATION
     Route: 065
     Dates: end: 20061107
  4. ALLOPURINOL TAB [Concomitant]
     Indication: DRUG USE FOR UNKNOWN INDICATION
     Dosage: 300 MG
     Route: 065
     Dates: end: 20061107
  5. DIAMICRON [Concomitant]
     Indication: DRUG USE FOR UNKNOWN INDICATION
     Route: 065
     Dates: end: 20061107
  6. ASPIRIN [Concomitant]
     Indication: DRUG USE FOR UNKNOWN INDICATION
     Route: 048
     Dates: end: 20061116
  7. ASPIRIN [Concomitant]
     Route: 048
     Dates: start: 20061120
  8. XANAX [Suspect]
     Indication: DRUG USE FOR UNKNOWN INDICATION
     Dosage: UNK
     Route: 048
     Dates: end: 20061116
  9. ZOLPIDEM TARTRATE [Suspect]
     Indication: DRUG USE FOR UNKNOWN INDICATION
     Route: 048
     Dates: end: 20061116
  10. CO-ENATEC [Concomitant]
     Indication: DRUG USE FOR UNKNOWN INDICATION
     Dosage: 1 DF
     Route: 065
     Dates: end: 20061107
  11. GLEEVEC [Suspect]
     Indication: CHRONIC MYELOID LEUKAEMIA
     Route: 048
     Dates: start: 20061001, end: 20061116

REACTIONS (2)
  - ACUTE GENERALISED EXANTHEMATOUS PUSTULOSIS [None]
  - SYSTEMIC INFLAMMATORY RESPONSE SYNDROME [None]
